FAERS Safety Report 8624517-9 (Version None)
Quarter: 2012Q3

REPORT INFORMATION
  Report Type: 
  Country: None (occurrence: None)
  Receive Date: 20120827
  Receipt Date: 20120820
  Transmission Date: 20120928
  Serious: Yes (Disabling)
  Sender: FDA-Public Use
  Company Number: NL-JNJFOC-20120810592

PATIENT
  Sex: Female

DRUGS (3)
  1. HYDROCORTISONE [Concomitant]
     Indication: PREMEDICATION
     Route: 065
  2. REMICADE [Suspect]
     Indication: CROHN'S DISEASE
     Dosage: RECEIVED 9 OR 10 INFUSIONS
     Route: 042
     Dates: end: 20120701
  3. ALL OTHER THERAPEUTIC PRODUCTS [Concomitant]
     Indication: PREMEDICATION
     Route: 065

REACTIONS (2)
  - MYALGIA [None]
  - MUSCULOSKELETAL STIFFNESS [None]
